FAERS Safety Report 19433882 (Version 1)
Quarter: 2021Q2

REPORT INFORMATION
  Report Type: Spontaneous
  Country: US (occurrence: US)
  Receive Date: 20210617
  Receipt Date: 20210617
  Transmission Date: 20210717
  Serious: No
  Sender: FDA-Public Use
  Company Number: US-ROCHE-2597473

PATIENT
  Sex: Male

DRUGS (1)
  1. ACTEMRA [Suspect]
     Active Substance: TOCILIZUMAB
     Indication: PRODUCT USED FOR UNKNOWN INDICATION
     Route: 065
     Dates: start: 20190801

REACTIONS (10)
  - Headache [Unknown]
  - Dyspnoea [Unknown]
  - Pain of skin [Unknown]
  - Dysphagia [Unknown]
  - Joint dislocation [Unknown]
  - Myalgia [Unknown]
  - Dysphonia [Unknown]
  - Muscle spasms [Unknown]
  - Oropharyngeal pain [Unknown]
  - Muscular weakness [Unknown]
